FAERS Safety Report 13047921 (Version 4)
Quarter: 2017Q1

REPORT INFORMATION
  Report Type: Spontaneous
  Country: US (occurrence: US)
  Receive Date: 20161220
  Receipt Date: 20170113
  Transmission Date: 20170428
  Serious: Yes (Other)
  Sender: FDA-Public Use
  Company Number: US-PFIZER INC-2016581314

PATIENT
  Sex: Male
  Weight: 82 kg

DRUGS (2)
  1. AMIODARONE HCL [Suspect]
     Active Substance: AMIODARONE HYDROCHLORIDE
     Indication: CARDIAC DISORDER
  2. AMIODARONE HCL [Suspect]
     Active Substance: AMIODARONE HYDROCHLORIDE
     Indication: BLOOD PRESSURE MANAGEMENT
     Dosage: 100 MG, 1X/DAY(200 MG, CUT IN HALF, ONCE DAILY)
     Route: 048
     Dates: end: 20161224

REACTIONS (2)
  - Atrial fibrillation [Unknown]
  - Product use issue [Unknown]
